FAERS Safety Report 12902170 (Version 1)
Quarter: 2016Q4

REPORT INFORMATION
  Report Type: Spontaneous
  Country: US (occurrence: US)
  Receive Date: 20161102
  Receipt Date: 20161102
  Transmission Date: 20170207
  Serious: No
  Sender: FDA-Public Use
  Company Number: US-PFIZER INC-2016504788

PATIENT
  Sex: Female

DRUGS (1)
  1. LYRICA [Suspect]
     Active Substance: PREGABALIN
     Indication: NEUROPATHY PERIPHERAL
     Dosage: 100 MG, 2X/DAY

REACTIONS (6)
  - Joint swelling [Unknown]
  - Myalgia [Unknown]
  - Peripheral swelling [Unknown]
  - Eyelid oedema [Unknown]
  - Somnolence [Unknown]
  - Drug ineffective [Unknown]
